FAERS Safety Report 5915415-X (Version None)
Quarter: 2008Q4

REPORT INFORMATION
  Report Type: 
  Country: None (occurrence: None)
  Receive Date: 20081010
  Receipt Date: 20080929
  Transmission Date: 20090506
  Serious: Yes (Hospitalization, Other)
  Sender: FDA-Public Use
  Company Number: US-PFIZER INC-2008082289

PATIENT
  Age: 50 Year
  Sex: Female
  Weight: 97.5 kg

DRUGS (2)
  1. LYRICA [Suspect]
     Indication: FIBROMYALGIA
     Dates: start: 20080101, end: 20080901
  2. LYRICA [Suspect]
     Indication: DIABETES MELLITUS

REACTIONS (3)
  - CONVULSION [None]
  - JOINT INJURY [None]
  - LOSS OF CONSCIOUSNESS [None]
